FAERS Safety Report 6005615-5 (Version None)
Quarter: 2008Q4

REPORT INFORMATION
  Report Type: 
  Country: None (occurrence: None)
  Receive Date: 20081215
  Receipt Date: 20081215
  Transmission Date: 20090506
  Serious: Yes (Other)
  Sender: FDA-Public Use
  Company Number: None

PATIENT
  Age: 33 Year
  Sex: Female
  Weight: 68.0396 kg

DRUGS (1)
  1. METRONIDAZOLE [Suspect]
     Indication: INFECTION
     Dosage: 1 TAB 2 X DAY PO
     Route: 048
     Dates: start: 20081213, end: 20081213

REACTIONS (6)
  - DYSPNOEA [None]
  - FEAR [None]
  - HYPOAESTHESIA [None]
  - PAIN [None]
  - PARAESTHESIA [None]
  - URTICARIA [None]
